APPROVED DRUG PRODUCT: PILOCARPINE HYDROCHLORIDE
Active Ingredient: PILOCARPINE HYDROCHLORIDE
Strength: 1%
Dosage Form/Route: SOLUTION/DROPS;OPHTHALMIC
Application: A217052 | Product #001 | TE Code: AT
Applicant: FDC LTD
Approved: Oct 2, 2025 | RLD: No | RS: No | Type: RX